FAERS Safety Report 8868733 (Version 3)
Quarter: 2013Q1

REPORT INFORMATION
  Report Type: Spontaneous
  Country: US (occurrence: US)
  Receive Date: 20121024
  Receipt Date: 20130107
  Transmission Date: 20140127
  Serious: Yes (Hospitalization)
  Sender: FDA-Public Use
  Company Number: US-ELI_LILLY_AND_COMPANY-US201210004145

PATIENT
  Sex: Female
  Weight: 47.62 kg

DRUGS (7)
  1. EVISTA [Suspect]
     Indication: OSTEOPOROSIS
     Dosage: 60 MG, QD
     Route: 048
  2. FOSAMAX [Concomitant]
  3. TYLENOL /00020001/ [Concomitant]
  4. CO Q-10 [Concomitant]
  5. VITAMIN C [Concomitant]
  6. CALTRATE WITH VITAMIN D [Concomitant]
  7. COLACE [Concomitant]

REACTIONS (1)
  - Colitis ischaemic [Recovered/Resolved]
